FAERS Safety Report 5088488-7 (Version None)
Quarter: 2006Q3

REPORT INFORMATION
  Report Type: 
  Country: None (occurrence: None)
  Receive Date: 20060823
  Receipt Date: 20060823
  Transmission Date: 20061208
  Serious: Yes (Other)
  Sender: FDA-Public Use
  Company Number: None

PATIENT
  Sex: Female
  Weight: 56.246 kg

DRUGS (2)
  1. ZOCOR [Suspect]
     Dosage: 40 MG
     Dates: start: 20060818, end: 20060821
  2. ZOCOR [Suspect]
     Dosage: 20 MG

REACTIONS (1)
  - MYALGIA [None]
